FAERS Safety Report 25590662 (Version 2)
Quarter: 2025Q3

REPORT INFORMATION
  Report Type: Report from Study
  Country: MX (occurrence: MX)
  Receive Date: 20250722
  Receipt Date: 20250801
  Transmission Date: 20251021
  Serious: Yes (Other)
  Sender: EMD SERONO INC
  Company Number: MX-Merck Healthcare KGaA-2025036169

PATIENT
  Age: 16 Year
  Sex: Male

DRUGS (2)
  1. SAIZEN [Suspect]
     Active Substance: SOMATROPIN
     Indication: Growth hormone deficiency
     Dates: start: 20231123
  2. LETROZOLE [Suspect]
     Active Substance: LETROZOLE
     Indication: Delayed puberty

REACTIONS (9)
  - Hallucination [Not Recovered/Not Resolved]
  - Suicidal ideation [Recovered/Resolved]
  - Hypersomnia [Not Recovered/Not Resolved]
  - Psychomotor hyperactivity [Not Recovered/Not Resolved]
  - Anxiety [Not Recovered/Not Resolved]
  - Weight increased [Not Recovered/Not Resolved]
  - Depressed mood [Not Recovered/Not Resolved]
  - Depressive symptom [Not Recovered/Not Resolved]
  - Social problem [Not Recovered/Not Resolved]

NARRATIVE: CASE EVENT DATE: 20250601
